APPROVED DRUG PRODUCT: TRICHLORMETHIAZIDE W/ RESERPINE
Active Ingredient: RESERPINE; TRICHLORMETHIAZIDE
Strength: 0.1MG;4MG
Dosage Form/Route: TABLET;ORAL
Application: A085248 | Product #001
Applicant: WATSON LABORATORIES INC
Approved: Approved Prior to Jan 1, 1982 | RLD: No | RS: No | Type: DISCN